FAERS Safety Report 6495151-4 (Version None)
Quarter: 2009Q4

REPORT INFORMATION
  Report Type: 
  Country: None (occurrence: None)
  Receive Date: 20091214
  Receipt Date: 20090513
  Transmission Date: 20100525
  Serious: No
  Sender: FDA-Public Use
  Company Number: US-BRISTOL-MYERS SQUIBB COMPANY-14614879

PATIENT
  Age: 18 Year
  Sex: Male

DRUGS (4)
  1. ABILIFY [Suspect]
     Indication: DEPRESSION
     Dosage: DOSE REDUCED TO 3.5MG/DAY
     Route: 048
     Dates: start: 20090303
  2. ABILIFY [Suspect]
     Indication: BIPOLAR I DISORDER
     Dosage: DOSE REDUCED TO 3.5MG/DAY
     Route: 048
     Dates: start: 20090303
  3. LITHIUM [Concomitant]
  4. BLOOD PRESSURE PILL [Concomitant]

REACTIONS (1)
  - AKATHISIA [None]
